FAERS Safety Report 14549195 (Version 1)
Quarter: 2018Q1

REPORT INFORMATION
  Report Type: Spontaneous
  Country: US (occurrence: US)
  Receive Date: 20180219
  Receipt Date: 20180219
  Transmission Date: 20180509
  Serious: No
  Sender: FDA-Public Use
  Company Number: US-ABBVIE-17P-163-2136667-00

PATIENT
  Sex: Female

DRUGS (2)
  1. VIEKIRA PAK [Suspect]
     Active Substance: DASABUVIR\OMBITASVIR\PARITAPREVIR\RITONAVIR
     Indication: HEPATITIS C
     Dosage: STRENGTH: 12.5, 75, 50. 3 TAB QAM, 1 TAB QPM
     Route: 048
     Dates: start: 20170725
  2. HALCION [Interacting]
     Active Substance: TRIAZOLAM
     Indication: INSOMNIA
     Route: 065

REACTIONS (3)
  - Insomnia [Unknown]
  - Hangover [Unknown]
  - Nausea [Unknown]

NARRATIVE: CASE EVENT DATE: 20170802
